FAERS Safety Report 15454993 (Version 1)
Quarter: 2018Q4

REPORT INFORMATION
  Report Type: Spontaneous
  Country: GB (occurrence: GB)
  Receive Date: 20181002
  Receipt Date: 20181002
  Transmission Date: 20190204
  Serious: Yes (Hospitalization, Other)
  Sender: FDA-Public Use
  Company Number: GB-BAYER-2018-182279

PATIENT
  Age: 88 Year
  Sex: Female

DRUGS (3)
  1. ACETYLSALICYLIC ACID({=100 MG) [Suspect]
     Active Substance: ASPIRIN
     Dosage: UNK
  2. BISOPROLOL [Suspect]
     Active Substance: BISOPROLOL
     Indication: HYPERTENSION
     Dosage: UNK
     Route: 048
  3. RIVAROXABAN [Suspect]
     Active Substance: RIVAROXABAN
     Dosage: UNK

REACTIONS (6)
  - Cognitive disorder [Unknown]
  - Haemorrhage intracranial [Unknown]
  - Seizure [Unknown]
  - Delirium [Unknown]
  - Product prescribing issue [Unknown]
  - Syncope [Unknown]

NARRATIVE: CASE EVENT DATE: 2015
